FAERS Safety Report 16639908 (Version 2)
Quarter: 2019Q4

REPORT INFORMATION
  Report Type: Report from Study
  Country: IT (occurrence: IT)
  Receive Date: 20190727
  Receipt Date: 20191002
  Transmission Date: 20200122
  Serious: Yes (Hospitalization)
  Sender: FDA-Public Use
  Company Number: IT-ACCORD-149123

PATIENT
  Age: 86 Year
  Sex: Female

DRUGS (10)
  1. FUROSEMIDE. [Suspect]
     Active Substance: FUROSEMIDE
     Indication: OEDEMA
     Route: 048
     Dates: start: 20180711, end: 20190522
  2. PANTORC [Concomitant]
     Active Substance: PANTOPRAZOLE SODIUM
     Dosage: 20 MG GASTRO-RESISTANT TABLETS
  3. DELTACORTENE [Concomitant]
     Active Substance: PREDNISONE
  4. CARDIOASPIRIN [Concomitant]
     Active Substance: ASPIRIN
  5. EUTIROX [Concomitant]
     Active Substance: LEVOTHYROXINE SODIUM
  6. RYTMONORM [Concomitant]
     Active Substance: PROPAFENONE
  7. TORVAST [Concomitant]
     Active Substance: ATORVASTATIN
     Dosage: 10 MG
  8. CANRENONE [Interacting]
     Active Substance: CANRENONE
     Indication: OEDEMA
     Route: 048
     Dates: start: 20190510, end: 20190522
  9. COLECALCIFEROL [Concomitant]
     Active Substance: CHOLECALCIFEROL
  10. HYDROXYCARBAMIDE [Concomitant]
     Active Substance: HYDROXYUREA

REACTIONS (4)
  - Asthenia [Recovering/Resolving]
  - Dyspnoea at rest [Recovering/Resolving]
  - Weight decreased [Recovering/Resolving]
  - Drug interaction [Unknown]

NARRATIVE: CASE EVENT DATE: 20190520
